FAERS Safety Report 4683658-1 (Version None)
Quarter: 2005Q2

REPORT INFORMATION
  Report Type: 
  Country: None (occurrence: None)
  Receive Date: 20050607
  Receipt Date: 20050527
  Transmission Date: 20051028
  Serious: Yes (Other)
  Sender: FDA-Public Use
  Company Number: US-JNJFOC-20050600518

PATIENT
  Age: 54 Year
  Sex: Female

DRUGS (2)
  1. ARESTIN [Suspect]
     Indication: PERIODONTITIS
     Route: 004
  2. NATURAL SUPPLEMENTS [Concomitant]

REACTIONS (1)
  - VISION BLURRED [None]
